FAERS Safety Report 23225086 (Version 1)
Quarter: 2023Q4

REPORT INFORMATION
  Report Type: Spontaneous
  Country: US (occurrence: US)
  Receive Date: 20231124
  Receipt Date: 20231124
  Transmission Date: 20240109
  Serious: Yes (Other)
  Sender: FDA-Public Use
  Company Number: US-APOTEX-2023AP016958

PATIENT
  Age: 19 Year

DRUGS (1)
  1. FLUVOXAMINE MALEATE [Suspect]
     Active Substance: FLUVOXAMINE MALEATE
     Indication: Obsessive-compulsive disorder
     Dosage: UNK
     Route: 065

REACTIONS (11)
  - Suicidal ideation [Unknown]
  - Anger [Unknown]
  - Irritability [Unknown]
  - Aggression [Unknown]
  - Impulsive behaviour [Unknown]
  - Fear [Unknown]
  - Frustration tolerance decreased [Unknown]
  - Screaming [Unknown]
  - Intrusive thoughts [Unknown]
  - Agitation [Unknown]
  - Insomnia [Unknown]

NARRATIVE: CASE EVENT DATE: 20231101
